FAERS Safety Report 20339633 (Version 1)
Quarter: 2022Q1

REPORT INFORMATION
  Report Type: Report from Study
  Country: CA (occurrence: CA)
  Receive Date: 20220117
  Receipt Date: 20220117
  Transmission Date: 20220423
  Serious: Yes (Other)
  Sender: FDA-Public Use
  Company Number: CA-AMGEN-CANSL2022001081

PATIENT
  Age: 55 Year
  Sex: Male

DRUGS (1)
  1. ENBREL [Suspect]
     Active Substance: ETANERCEPT
     Indication: Psoriatic arthropathy
     Dosage: 50 MILLIGRAM, 2 TIMES/WK
     Route: 065
     Dates: start: 20211211

REACTIONS (27)
  - Haematochezia [Unknown]
  - Haemorrhage [Not Recovered/Not Resolved]
  - Haemorrhagic diathesis [Unknown]
  - Rhinorrhoea [Not Recovered/Not Resolved]
  - Dizziness [Unknown]
  - Productive cough [Not Recovered/Not Resolved]
  - Headache [Unknown]
  - Paraesthesia [Unknown]
  - Terminal dribbling [Unknown]
  - Ocular icterus [Unknown]
  - Hypoaesthesia [Unknown]
  - Diplopia [Unknown]
  - Muscular weakness [Unknown]
  - Poor quality sleep [Unknown]
  - Disturbance in attention [Unknown]
  - Insomnia [Unknown]
  - Hyperhidrosis [Unknown]
  - Pain in extremity [Not Recovered/Not Resolved]
  - Arthralgia [Not Recovered/Not Resolved]
  - Dry mouth [Unknown]
  - Depression [Unknown]
  - Decreased appetite [Unknown]
  - Fatigue [Unknown]
  - Pain [Not Recovered/Not Resolved]
  - Psoriasis [Not Recovered/Not Resolved]
  - Off label use [Unknown]
  - Dyspnoea [Unknown]

NARRATIVE: CASE EVENT DATE: 20211201
